FAERS Safety Report 4738808-5 (Version None)
Quarter: 2005Q3

REPORT INFORMATION
  Report Type: 
  Country: None (occurrence: None)
  Receive Date: 20050804
  Receipt Date: 20050725
  Transmission Date: 20060218
  Serious: Yes (Other)
  Sender: FDA-Public Use
  Company Number: 2005EU001641

PATIENT
  Age: 25 Year
  Sex: Female

DRUGS (3)
  1. PROGRAF [Suspect]
     Indication: RENAL TRANSPLANT
     Dosage: 3.50 MG, UID/QD, ORAL
     Route: 048
  2. CORTANCYL (PREDNISONE) [Suspect]
     Indication: RENAL TRANSPLANT
     Dosage: 5.0 MG, UID/QD
  3. IMURAN [Suspect]
     Indication: RENAL TRANSPLANT
     Dosage: 50.00 MG, UID/QD

REACTIONS (5)
  - CAESAREAN SECTION [None]
  - DRUG EXPOSURE DURING PREGNANCY [None]
  - DRUG EXPOSURE VIA BREAST MILK [None]
  - PREGNANCY [None]
  - PREMATURE LABOUR [None]
